FAERS Safety Report 5033605-8 (Version None)
Quarter: 2006Q2

REPORT INFORMATION
  Report Type: 
  Country: None (occurrence: None)
  Receive Date: 20060623
  Receipt Date: 20060524
  Transmission Date: 20061013
  Serious: Yes (Death, Hospitalization, Other)
  Sender: FDA-Public Use
  Company Number: PHBS2006JP07648

PATIENT
  Age: 56 Year
  Sex: Male

DRUGS (2)
  1. PREDNISOLONE [Concomitant]
     Indication: BONE MARROW TRANSPLANT
  2. CYCLOSPORINE [Suspect]
     Indication: BONE MARROW TRANSPLANT
     Route: 065

REACTIONS (12)
  - CARDIAC FAILURE [None]
  - CENTRAL VENOUS PRESSURE DECREASED [None]
  - DILATATION VENTRICULAR [None]
  - GRAFT VERSUS HOST DISEASE [None]
  - HEPATORENAL FAILURE [None]
  - INFECTION [None]
  - LIVER DISORDER [None]
  - PERICARDIAL EFFUSION [None]
  - PERICARDIAL EXCISION [None]
  - PERICARDIAL OPERATION [None]
  - PERICARDITIS CONSTRICTIVE [None]
  - RENAL IMPAIRMENT [None]
